FAERS Safety Report 6898346-0 (Version None)
Quarter: 2010Q3

REPORT INFORMATION
  Report Type: 
  Country: None (occurrence: None)
  Receive Date: 20100802
  Receipt Date: 20071008
  Transmission Date: 20110219
  Serious: Yes (Other)
  Sender: FDA-Public Use
  Company Number: US-PFIZER INC-2007084181

PATIENT
  Sex: Female
  Weight: 56.7 kg

DRUGS (4)
  1. LYRICA [Suspect]
     Indication: NEURALGIA
     Route: 048
     Dates: start: 20070501
  2. METHADONE HCL [Concomitant]
  3. ALLERGY MEDICATION [Concomitant]
  4. PREVACID [Concomitant]

REACTIONS (6)
  - EMOTIONAL DISORDER [None]
  - GLOSSODYNIA [None]
  - NAUSEA [None]
  - SPEECH DISORDER [None]
  - SWOLLEN TONGUE [None]
  - THINKING ABNORMAL [None]
